FAERS Safety Report 10472729 (Version 2)
Quarter: 2016Q3

REPORT INFORMATION
  Report Type: Spontaneous
  Country: US (occurrence: US)
  Receive Date: 20140924
  Receipt Date: 20160802
  Transmission Date: 20161109
  Serious: Yes (Death)
  Sender: FDA-Public Use
  Company Number: US-JNJFOC-20140915891

PATIENT
  Age: 15 Month
  Sex: Male

DRUGS (1)
  1. FENTANYL. [Suspect]
     Active Substance: FENTANYL
     Indication: PRODUCT USED FOR UNKNOWN INDICATION
     Route: 048

REACTIONS (3)
  - Toxicity to various agents [Fatal]
  - Pulmonary oedema [Not Recovered/Not Resolved]
  - Accidental exposure to product by child [Fatal]
